FAERS Safety Report 5245766-6 (Version None)
Quarter: 2007Q1

REPORT INFORMATION
  Report Type: 
  Country: None (occurrence: None)
  Receive Date: 20070223
  Receipt Date: 20070215
  Transmission Date: 20070707
  Serious: Yes (Hospitalization, Other)
  Sender: FDA-Public Use
  Company Number: JP-PFIZER INC-2007012903

PATIENT
  Age: 37 Year
  Sex: Male

DRUGS (2)
  1. ZOLOFT [Suspect]
     Indication: DEPRESSION
     Dosage: DAILY DOSE:100MG
     Route: 048
  2. EVAMYL [Concomitant]
     Route: 048

REACTIONS (4)
  - FALL [None]
  - FRACTURE [None]
  - NERVOUS SYSTEM DISORDER [None]
  - URINARY RETENTION [None]
